FAERS Safety Report 5501315-6 (Version None)
Quarter: 2007Q4

REPORT INFORMATION
  Report Type: 
  Country: None (occurrence: None)
  Receive Date: 20071026
  Receipt Date: 20071011
  Transmission Date: 20080405
  Serious: Yes (Disabling)
  Sender: FDA-Public Use
  Company Number: 2007ST000217

PATIENT
  Age: 56 Year
  Sex: Female
  Weight: 50.3493 kg

DRUGS (7)
  1. ZEGERID [Suspect]
     Indication: GASTRITIS
     Dosage: 40 MG; QD; PO
     Route: 048
     Dates: start: 20070508, end: 20070814
  2. PROLASTIN [Concomitant]
  3. ALBUTEROL [Concomitant]
  4. ATROVENT [Concomitant]
  5. PULMICORT [Concomitant]
  6. DUONEB [Concomitant]
  7. XANAX [Concomitant]

REACTIONS (5)
  - DYSPNOEA [None]
  - FORMICATION [None]
  - MERALGIA PARAESTHETICA [None]
  - NERVE COMPRESSION [None]
  - WEIGHT INCREASED [None]
